FAERS Safety Report 4808905-4 (Version None)
Quarter: 2005Q4

REPORT INFORMATION
  Report Type: 
  Country: None (occurrence: None)
  Receive Date: 20051024
  Receipt Date: 20051006
  Transmission Date: 20060501
  Serious: Yes (Life-Threatening, Hospitalization)
  Sender: FDA-Public Use
  Company Number: 32648

PATIENT
  Age: 56 Year
  Sex: Female

DRUGS (3)
  1. IOPIDINE [Suspect]
     Indication: INTRAOCULAR PRESSURE INCREASED
     Dosage: 5 ML OVER 12 HOURS, OPHT
     Route: 047
  2. IOPIDINE [Suspect]
     Indication: PROPHYLAXIS
     Dosage: 5 ML OVER 12 HOURS, OPHT
     Route: 047
  3. LOSARTAN [Concomitant]

REACTIONS (14)
  - ACCIDENTAL OVERDOSE [None]
  - ANAEMIA [None]
  - ASTHENIA [None]
  - BLOOD PRESSURE INCREASED [None]
  - BLOOD UREA INCREASED [None]
  - BRADYCARDIA [None]
  - DEPRESSED LEVEL OF CONSCIOUSNESS [None]
  - DYSARTHRIA [None]
  - HEADACHE [None]
  - HYPOTENSION [None]
  - INAPPROPRIATE SCHEDULE OF DRUG ADMINISTRATION [None]
  - MENTAL STATUS CHANGES [None]
  - SINUS BRADYCARDIA [None]
  - SOMNOLENCE [None]
